FAERS Safety Report 7983935-2 (Version None)
Quarter: 2011Q4

REPORT INFORMATION
  Report Type: 
  Country: None (occurrence: None)
  Receive Date: 20111216
  Receipt Date: 20111213
  Transmission Date: 20120403
  Serious: No
  Sender: FDA-Public Use
  Company Number: US-BIOGENIDEC-2011BI047258

PATIENT
  Sex: Female

DRUGS (2)
  1. TYSABRI [Suspect]
     Indication: MULTIPLE SCLEROSIS
     Route: 042
     Dates: start: 20090304, end: 20091019
  2. SYNTHROID [Concomitant]

REACTIONS (5)
  - OSTEOPOROSIS [None]
  - TOOTH FRACTURE [None]
  - HYPOTHYROIDISM [None]
  - DEPRESSION [None]
  - MOVEMENT DISORDER [None]
